FAERS Safety Report 22910529 (Version 2)
Quarter: 2023Q4

REPORT INFORMATION
  Report Type: Spontaneous
  Country: FR (occurrence: FR)
  Receive Date: 20230906
  Receipt Date: 20231030
  Transmission Date: 20240110
  Serious: Yes (Death)
  Sender: FDA-Public Use
  Company Number: FR-NOVOPROD-1108502

PATIENT
  Age: 28 Year
  Sex: Female
  Weight: 111.9 kg

DRUGS (5)
  1. WEGOVY [Suspect]
     Active Substance: SEMAGLUTIDE
     Indication: Obesity
     Dosage: UNK
     Dates: start: 20230527
  2. WEGOVY [Suspect]
     Active Substance: SEMAGLUTIDE
     Dosage: 1 MG
  3. ESTRADIOL [Concomitant]
     Active Substance: ESTRADIOL
     Indication: Turner^s syndrome
     Dosage: 1.00 DF, QD
     Dates: start: 202103
  4. DUPHASTON [Concomitant]
     Active Substance: DYDROGESTERONE
     Indication: Turner^s syndrome
     Dosage: 1.00 DF, QD
     Route: 048
     Dates: start: 202103
  5. HYRIMOZ [Concomitant]
     Active Substance: ADALIMUMAB-ADAZ
     Indication: Crohn^s disease
     Dosage: 1 INJECTION PER MONTH
     Route: 058

REACTIONS (1)
  - Aortic dissection [Fatal]

NARRATIVE: CASE EVENT DATE: 20230814
